FAERS Safety Report 7389232-0 (Version None)
Quarter: 2011Q2

REPORT INFORMATION
  Report Type: 
  Country: None (occurrence: None)
  Receive Date: 20110401
  Receipt Date: 20110318
  Transmission Date: 20111010
  Serious: Yes (Life-Threatening, Hospitalization)
  Sender: FDA-Public Use
  Company Number: JP-ELI_LILLY_AND_COMPANY-JP201101004751

PATIENT
  Sex: Male
  Weight: 41.5 kg

DRUGS (3)
  1. GRANISETRON HYDROCHLORIDE [Concomitant]
     Indication: PROPHYLAXIS
     Dosage: 3 MG, UNK
     Route: 042
     Dates: start: 20100721, end: 20101013
  2. GEMZAR [Suspect]
     Indication: BILE DUCT CANCER STAGE II
     Dosage: 1400 MG, OTHER
     Route: 042
     Dates: start: 20100721, end: 20101013
  3. DEXART [Concomitant]
     Indication: PROPHYLAXIS
     Dosage: 6.6 MG, UNK
     Route: 042
     Dates: start: 20100721, end: 20101013

REACTIONS (5)
  - BLOOD ALBUMIN DECREASED [None]
  - PROTEIN-LOSING GASTROENTEROPATHY [None]
  - PLEURAL EFFUSION [None]
  - MALNUTRITION [None]
  - ASCITES [None]
